FAERS Safety Report 5593618-4 (Version None)
Quarter: 2008Q1

REPORT INFORMATION
  Report Type: 
  Country: None (occurrence: None)
  Receive Date: 20080116
  Receipt Date: 20080111
  Transmission Date: 20080703
  Serious: Yes (Death)
  Sender: FDA-Public Use
  Company Number: FR-AVENTIS-200810162FR

PATIENT
  Age: 65 Year
  Sex: Male

DRUGS (2)
  1. TAXOTERE [Suspect]
     Indication: PENIS CARCINOMA METASTATIC
     Route: 042
     Dates: start: 20070607, end: 20070607
  2. CARBOPLATIN [Suspect]
     Indication: PENIS CARCINOMA METASTATIC
     Route: 042
     Dates: start: 20070607, end: 20070607

REACTIONS (1)
  - INTERSTITIAL LUNG DISEASE [None]
